FAERS Safety Report 4314621-8 (Version None)
Quarter: 2004Q1

REPORT INFORMATION
  Report Type: 
  Country: None (occurrence: None)
  Receive Date: 20040308
  Receipt Date: 20040223
  Transmission Date: 20041129
  Serious: Yes (Hospitalization)
  Sender: FDA-Public Use
  Company Number: 04P-163-0249316-00

PATIENT
  Age: 45 Year
  Sex: Male
  Weight: 113.3993 kg

DRUGS (9)
  1. MERIDIA [Suspect]
     Indication: WEIGHT CONTROL
     Dosage: 10 MG, 1 IN 1 D, PER ORAL
     Route: 048
     Dates: start: 20031102, end: 20031118
  2. INSULIN 30/70 [Concomitant]
  3. ATORVASTATIN [Concomitant]
  4. GLYBURIDE [Concomitant]
  5. GLUCOPHAGE [Concomitant]
  6. LANSOPRAZOLE [Concomitant]
  7. ENALAPRIL MALEATE [Concomitant]
  8. HYZAAR [Concomitant]
  9. KARVEA HCT [Concomitant]

REACTIONS (3)
  - CHEST PAIN [None]
  - HYPERTENSIVE CRISIS [None]
  - MOUNTAIN SICKNESS ACUTE [None]
